FAERS Safety Report 9796374 (Version 1)
Quarter: 2014Q1

REPORT INFORMATION
  Report Type: Spontaneous
  Country: US (occurrence: US)
  Receive Date: 20140103
  Receipt Date: 20140103
  Transmission Date: 20141002
  Serious: No
  Sender: FDA-Public Use
  Company Number: US-BAYER-2014-000440

PATIENT
  Sex: Male

DRUGS (2)
  1. ALEVE TABLET [Suspect]
     Indication: ARTHRALGIA
     Dosage: 2 DF, QD
     Route: 048
     Dates: start: 20131225, end: 20131230
  2. ALEVE TABLET [Suspect]
     Indication: BACK PAIN

REACTIONS (2)
  - Pain [None]
  - Drug ineffective [None]
